FAERS Safety Report 25793470 (Version 1)
Quarter: 2025Q3

REPORT INFORMATION
  Report Type: Spontaneous
  Country: JP (occurrence: JP)
  Receive Date: 20250911
  Receipt Date: 20250911
  Transmission Date: 20251021
  Serious: Yes (Other)
  Sender: JOHNSON AND JOHNSON
  Company Number: JP-JNJFOC-20250902819

PATIENT
  Age: 8 Decade
  Sex: Female

DRUGS (5)
  1. RYBREVANT [Suspect]
     Active Substance: AMIVANTAMAB-VMJW
     Indication: EGFR gene mutation
     Dosage: DAY1
     Route: 041
     Dates: start: 20250825, end: 20250825
  2. RYBREVANT [Suspect]
     Active Substance: AMIVANTAMAB-VMJW
     Route: 041
     Dates: start: 20250826, end: 20250826
  3. RYBREVANT [Suspect]
     Active Substance: AMIVANTAMAB-VMJW
     Route: 041
     Dates: start: 20250901, end: 20250901
  4. CARBOPLATIN [Concomitant]
     Active Substance: CARBOPLATIN
     Indication: EGFR gene mutation
     Route: 065
     Dates: start: 20250825
  5. PEMETREXED [Concomitant]
     Active Substance: PEMETREXED
     Indication: EGFR gene mutation
     Route: 065
     Dates: start: 20250825

REACTIONS (3)
  - Myelosuppression [Unknown]
  - Infusion related reaction [Unknown]
  - Off label use [Unknown]

NARRATIVE: CASE EVENT DATE: 20250101
